FAERS Safety Report 6103784-X (Version None)
Quarter: 2009Q1

REPORT INFORMATION
  Report Type: 
  Country: None (occurrence: None)
  Receive Date: 20090305
  Receipt Date: 20090225
  Transmission Date: 20090719
  Serious: Yes (Hospitalization)
  Sender: FDA-Public Use
  Company Number: FR-ABBOTT-09P-056-0559196-00

PATIENT
  Sex: Male

DRUGS (2)
  1. KALETRA [Suspect]
     Indication: HIV INFECTION
     Route: 048
     Dates: start: 20040225, end: 20080129
  2. NEVIRAPINE [Concomitant]
     Indication: HIV INFECTION
     Dates: start: 20040225

REACTIONS (1)
  - OPTIC NEURITIS [None]
